FAERS Safety Report 20381554 (Version 2)
Quarter: 2022Q2

REPORT INFORMATION
  Report Type: Spontaneous
  Country: JP (occurrence: JP)
  Receive Date: 20220127
  Receipt Date: 20220601
  Transmission Date: 20220721
  Serious: No
  Sender: FDA-Public Use
  Company Number: JP-GLAXOSMITHKLINE-JP2022JPN011331

PATIENT

DRUGS (4)
  1. SOTROVIMAB [Suspect]
     Active Substance: SOTROVIMAB
     Indication: COVID-19
     Dosage: 500 MG
     Route: 042
     Dates: start: 20220120, end: 20220120
  2. COMIRNATY [Suspect]
     Active Substance: TOZINAMERAN
     Dosage: UNK
     Dates: start: 202111
  3. MAGNESIUM OXIDE [Suspect]
     Active Substance: MAGNESIUM OXIDE
     Indication: Constipation
     Dosage: 1500 MG
     Route: 048
  4. HEPARIN CALCIUM [Suspect]
     Active Substance: HEPARIN CALCIUM
     Indication: Thrombosis prophylaxis
     Dosage: 10000 ?/DAY
     Route: 058
     Dates: start: 20220120

REACTIONS (1)
  - Exposure during pregnancy [Unknown]
